FAERS Safety Report 4824637-0 (Version None)
Quarter: 2005Q4

REPORT INFORMATION
  Report Type: 
  Country: None (occurrence: None)
  Receive Date: 20051108
  Receipt Date: 20051025
  Transmission Date: 20060501
  Serious: Yes (Life-Threatening, Hospitalization, Other)
  Sender: FDA-Public Use
  Company Number: 2005139512

PATIENT
  Age: 42 Year
  Sex: Male
  Weight: 90 kg

DRUGS (1)
  1. NARDIL [Suspect]
     Indication: DEPRESSION
     Dosage: ORAL
     Route: 048
     Dates: end: 20051005

REACTIONS (5)
  - AGGRESSION [None]
  - AGITATION [None]
  - COMA [None]
  - INTENTIONAL OVERDOSE [None]
  - MUSCLE SPASTICITY [None]
